FAERS Safety Report 7009352 (Version 2)
Quarter: 2014Q3

REPORT INFORMATION
  Report Type: Spontaneous
  Country: US (occurrence: None)
  Receive Date: 20090526
  Receipt Date: 20140815
  Transmission Date: 20150326
  Serious: Yes (Hospitalization, Other)
  Sender: FDA-Public Use
  Company Number: 2009S1004111

PATIENT
  Age: 74 Year
  Sex: Female
  Weight: 81 kg

DRUGS (6)
  1. CALCIUM/VITAMIN D (CALCIUM CARBONATE, VITAMIN D NOS) [Concomitant]
  2. LISINOPRIL. [Concomitant]
     Active Substance: LISINOPRIL
  3. PHOSPHO-SODA [Suspect]
     Active Substance: SODIUM PHOSPHATE, DIBASIC\SODIUM PHOSPHATE, MONOBASIC
     Indication: COLONOSCOPY
     Dosage: PO
     Route: 048
     Dates: start: 20080909, end: 20080910
  4. ZOCOR [Concomitant]
     Active Substance: SIMVASTATIN
  5. HYDROCHLOROTHIAZIDE. [Concomitant]
     Active Substance: HYDROCHLOROTHIAZIDE
  6. CITRUCEL (METHYLCELLULOSE) [Concomitant]

REACTIONS (32)
  - Nervousness [None]
  - Vomiting [None]
  - Asthenia [None]
  - Angiotensin converting enzyme decreased [None]
  - Iron deficiency anaemia [None]
  - Nausea [None]
  - Paraesthesia [None]
  - Homocystinaemia [None]
  - Fatigue [None]
  - Retching [None]
  - Feeling cold [None]
  - Hypercalcaemia [None]
  - Hypertension [None]
  - Hyperlipidaemia [None]
  - Oedema [None]
  - Ageusia [None]
  - Dehydration [None]
  - Hypotension [None]
  - Urinary tract infection [None]
  - Functional gastrointestinal disorder [None]
  - Constipation [None]
  - Hypokalaemia [None]
  - Ecchymosis [None]
  - Weight decreased [None]
  - Renal failure acute [None]
  - Hyponatraemia [None]
  - Inflammatory bowel disease [None]
  - Neurogenic bladder [None]
  - Type V hyperlipidaemia [None]
  - Renal failure chronic [None]
  - Hypophagia [None]
  - Malaise [None]

NARRATIVE: CASE EVENT DATE: 20081022
